FAERS Safety Report 8206347-5 (Version None)
Quarter: 2012Q1

REPORT INFORMATION
  Report Type: 
  Country: None (occurrence: None)
  Receive Date: 20120313
  Receipt Date: 20120307
  Transmission Date: 20120608
  Serious: Yes (Other)
  Sender: FDA-Public Use
  Company Number: PHHY2011CA72935

PATIENT
  Sex: Male

DRUGS (1)
  1. GILENYA [Suspect]
     Indication: RELAPSING-REMITTING MULTIPLE SCLEROSIS
     Dosage: 0.5 MG, DAILY
     Route: 048
     Dates: start: 20110805, end: 20120202

REACTIONS (9)
  - FATIGUE [None]
  - MALAISE [None]
  - BLADDER DISORDER [None]
  - VISUAL IMPAIRMENT [None]
  - ASTHENIA [None]
  - AREFLEXIA [None]
  - TINNITUS [None]
  - BALANCE DISORDER [None]
  - DRY MOUTH [None]
